FAERS Safety Report 24738843 (Version 2)
Quarter: 2024Q4

REPORT INFORMATION
  Report Type: Report from Study
  Country: FR (occurrence: FR)
  Receive Date: 20241216
  Receipt Date: 20241220
  Transmission Date: 20250115
  Serious: Yes (Death)
  Sender: PFIZER
  Company Number: FR-SEATTLE GENETICS-2015SGN01798

PATIENT

DRUGS (1)
  1. ADCETRIS [Suspect]
     Active Substance: BRENTUXIMAB VEDOTIN
     Indication: Anaplastic large cell lymphoma T- and null-cell types
     Dosage: 1.8 MG/KG, EVERY 3 WEEKS (Q21D)
     Route: 042

REACTIONS (1)
  - Death [Fatal]
